FAERS Safety Report 7529063-1 (Version None)
Quarter: 2011Q2

REPORT INFORMATION
  Report Type: 
  Country: None (occurrence: None)
  Receive Date: 20110520
  Receipt Date: 20110323
  Transmission Date: 20111010
  Serious: No
  Sender: FDA-Public Use
  Company Number: 029907

PATIENT
  Age: 50 Year
  Sex: Male

DRUGS (1)
  1. LACOSAMIDE [Suspect]
     Dosage: (350 MG, DRUG STRENGTH: 200MG, 100MG AND 50MG) ; (UNKNOWN DOSAGE)

REACTIONS (4)
  - IRRITABILITY [None]
  - CONVULSION [None]
  - EATING DISORDER [None]
  - PERSONALITY CHANGE [None]
